FAERS Safety Report 7303403-0 (Version None)
Quarter: 2011Q1

REPORT INFORMATION
  Report Type: 
  Country: None (occurrence: None)
  Receive Date: 20110221
  Receipt Date: 20110207
  Transmission Date: 20110831
  Serious: Yes (Other)
  Sender: FDA-Public Use
  Company Number: US-ELI_LILLY_AND_COMPANY-US201102002267

PATIENT
  Sex: Female

DRUGS (3)
  1. FORTEO [Suspect]
     Indication: OSTEOPOROSIS
     Dosage: 20 UG, DAILY (1/D)
     Dates: start: 20100401, end: 20100601
  2. FORTEO [Suspect]
     Dosage: 20 UG, DAILY (1/D)
     Dates: start: 20110207
  3. KLONOPIN [Concomitant]
     Indication: DEPRESSION

REACTIONS (5)
  - HEADACHE [None]
  - STRESS FRACTURE [None]
  - VITREOUS DETACHMENT [None]
  - VOMITING [None]
  - NAUSEA [None]
